FAERS Safety Report 5678839-4 (Version None)
Quarter: 2008Q1

REPORT INFORMATION
  Report Type: 
  Country: None (occurrence: None)
  Receive Date: 20080324
  Receipt Date: 20080324
  Transmission Date: 20080703
  Serious: Yes (Hospitalization)
  Sender: FDA-Public Use
  Company Number: None

PATIENT
  Age: 80 Year
  Sex: Male
  Weight: 76 kg

DRUGS (2)
  1. GEMCITABINE [Suspect]
     Indication: NEOPLASM
     Dosage: 1950MG ONCE IV
     Route: 042
     Dates: start: 20080305, end: 20080305
  2. LISINOPRIL [Suspect]
     Indication: HYPERTENSION
     Dosage: 20MG EVERY DAY PO
     Route: 048
     Dates: start: 20080207

REACTIONS (4)
  - HYPOTENSION [None]
  - HYPOVOLAEMIA [None]
  - NAUSEA [None]
  - VOMITING [None]
